FAERS Safety Report 9826852 (Version 1)
Quarter: 2014Q1

REPORT INFORMATION
  Report Type: Report from Study
  Country: CA (occurrence: CA)
  Receive Date: 20140117
  Receipt Date: 20140117
  Transmission Date: 20141002
  Serious: Yes (Other)
  Sender: FDA-Public Use
  Company Number: CA-JNJFOC-20140106618

PATIENT
  Age: 60 Year
  Sex: Male
  Weight: 75.6 kg

DRUGS (3)
  1. REMICADE [Suspect]
     Indication: CROHN^S DISEASE
     Route: 042
     Dates: start: 20090916
  2. IMURAN [Concomitant]
     Route: 065
  3. ZOPICLONE [Concomitant]
     Route: 065

REACTIONS (5)
  - Chest discomfort [Recovered/Resolved]
  - Fistula [Recovered/Resolved]
  - Malaise [Recovered/Resolved]
  - Pyrexia [Recovered/Resolved]
  - Cough [Recovered/Resolved]
